FAERS Safety Report 7403064-6 (Version None)
Quarter: 2011Q2

REPORT INFORMATION
  Report Type: 
  Country: None (occurrence: None)
  Receive Date: 20110408
  Receipt Date: 20110331
  Transmission Date: 20111010
  Serious: Yes (Life-Threatening, Other)
  Sender: FDA-Public Use
  Company Number: CA-JNJFOC-20110401294

PATIENT
  Sex: Male
  Weight: 96.4 kg

DRUGS (13)
  1. REMICADE [Suspect]
     Route: 042
  2. FOLIC ACID [Concomitant]
  3. LIPITOR [Concomitant]
  4. REMICADE [Suspect]
     Indication: RHEUMATOID ARTHRITIS
     Route: 042
  5. GLYBURIDE [Concomitant]
  6. ACETAMINOPHEN [Concomitant]
  7. CELEBREX [Concomitant]
  8. METHOTREXATE [Concomitant]
  9. HYDROCHLOROTHIAZIDE [Concomitant]
  10. METFORMIN [Concomitant]
  11. SYNTHROID [Concomitant]
  12. NORVASC [Concomitant]
  13. METOPROLOL [Concomitant]

REACTIONS (4)
  - DIZZINESS [None]
  - ASTHENIA [None]
  - DIARRHOEA [None]
  - VOMITING [None]
